FAERS Safety Report 7164407-4 (Version None)
Quarter: 2010Q4

REPORT INFORMATION
  Report Type: 
  Country: None (occurrence: None)
  Receive Date: 20101123
  Receipt Date: 20101011
  Transmission Date: 20110411
  Serious: No
  Sender: FDA-Public Use
  Company Number: 018086

PATIENT
  Sex: Male

DRUGS (3)
  1. CIMZIA [Suspect]
     Indication: CROHN'S DISEASE
     Dosage: 400 MG 1X/MONTH SUBCUTANEOUS, SUBCUTANEOUS
     Route: 058
     Dates: start: 20100816
  2. CIMZIA [Suspect]
     Indication: CROHN'S DISEASE
     Dosage: 400 MG 1X/MONTH SUBCUTANEOUS, SUBCUTANEOUS
     Route: 058
     Dates: start: 20100816
  3. CIMZIA [Suspect]

REACTIONS (5)
  - ARTHRALGIA [None]
  - INFREQUENT BOWEL MOVEMENTS [None]
  - INJECTION SITE DISCOMFORT [None]
  - PHOTOSENSITIVITY REACTION [None]
  - RASH [None]
